FAERS Safety Report 15889877 (Version 1)
Quarter: 2019Q1

REPORT INFORMATION
  Report Type: Spontaneous
  Country: FR (occurrence: FR)
  Receive Date: 20190130
  Receipt Date: 20190130
  Transmission Date: 20190417
  Serious: Yes (Hospitalization)
  Sender: FDA-Public Use
  Company Number: FR-PFIZER INC-2019035003

PATIENT
  Age: 45 Year
  Sex: Male
  Weight: 104 kg

DRUGS (2)
  1. KETOPROFENE [KETOPROFEN] [Suspect]
     Active Substance: KETOPROFEN
     Indication: BACK PAIN
     Dosage: 200 MG, DAILY (MORNING AND EVENING)
     Route: 048
     Dates: start: 20181226, end: 20181227
  2. IBUPROFEN. [Suspect]
     Active Substance: IBUPROFEN
     Indication: BACK PAIN
     Dosage: 1200 MG, DAILY  (MORNING, NOON AND EVENING)
     Route: 048
     Dates: start: 20181217, end: 20181226

REACTIONS (1)
  - Acute kidney injury [Recovering/Resolving]

NARRATIVE: CASE EVENT DATE: 20181227
